FAERS Safety Report 6427762-6 (Version None)
Quarter: 2009Q4

REPORT INFORMATION
  Report Type: 
  Country: None (occurrence: None)
  Receive Date: 20091030
  Receipt Date: 20091022
  Transmission Date: 20100525
  Serious: Yes (Hospitalization, Other)
  Sender: FDA-Public Use
  Company Number: 2009-04416

PATIENT
  Age: 81 Year
  Sex: Male

DRUGS (11)
  1. VELCADE [Suspect]
     Indication: MULTIPLE MYELOMA
  2. REVLIMID [Suspect]
     Indication: MULTIPLE MYELOMA
     Dosage: 25 MG, ORAL ; 25 MG, ORAL ; 25 MG, ORAL ; 15 MG, ORAL
     Route: 048
     Dates: start: 20090124, end: 20090213
  3. REVLIMID [Suspect]
     Indication: MULTIPLE MYELOMA
     Dosage: 25 MG, ORAL ; 25 MG, ORAL ; 25 MG, ORAL ; 15 MG, ORAL
     Route: 048
     Dates: start: 20090220, end: 20090220
  4. REVLIMID [Suspect]
     Indication: MULTIPLE MYELOMA
     Dosage: 25 MG, ORAL ; 25 MG, ORAL ; 25 MG, ORAL ; 15 MG, ORAL
     Route: 048
     Dates: start: 20090321, end: 20090701
  5. REVLIMID [Suspect]
     Indication: MULTIPLE MYELOMA
     Dosage: 25 MG, ORAL ; 25 MG, ORAL ; 25 MG, ORAL ; 15 MG, ORAL
     Route: 048
     Dates: start: 20090701
  6. ZOFRAN [Concomitant]
  7. DECADRON [Concomitant]
  8. INSULIN (INSULIN) [Concomitant]
  9. ASA (ACETYLSALCYLIC ACID) [Concomitant]
  10. AMIODARONE HCL [Concomitant]
  11. COUMADIN [Concomitant]

REACTIONS (4)
  - FALL [None]
  - HAEMOGLOBIN DECREASED [None]
  - HIP FRACTURE [None]
  - NEUROPATHY PERIPHERAL [None]
